FAERS Safety Report 15341711 (Version 1)
Quarter: 2018Q3

REPORT INFORMATION
  Report Type: Spontaneous
  Country: DE (occurrence: DE)
  Receive Date: 20180901
  Receipt Date: 20180901
  Transmission Date: 20181010
  Serious: Yes (Other)
  Sender: FDA-Public Use
  Company Number: DE-HETERO CORPORATE-HET2018DE00848

PATIENT
  Age: 42 Year
  Sex: Male

DRUGS (7)
  1. LEVETIRACETAM. [Suspect]
     Active Substance: LEVETIRACETAM
     Indication: SEIZURE
     Route: 065
  2. CARBAMAZEPINE. [Suspect]
     Active Substance: CARBAMAZEPINE
     Indication: SEIZURE
     Route: 065
  3. VALPROATE SODIUM. [Suspect]
     Active Substance: VALPROATE SODIUM
     Indication: SEIZURE
     Route: 065
  4. LAMOTRIGINE. [Suspect]
     Active Substance: LAMOTRIGINE
     Indication: SEIZURE
     Route: 065
  5. PHENYTOIN. [Suspect]
     Active Substance: PHENYTOIN
     Indication: SEIZURE
     Dosage: 400 MG, QD
     Route: 065
  6. CLONAZEPAM. [Suspect]
     Active Substance: CLONAZEPAM
     Indication: SEIZURE
     Route: 065
  7. VIGABATRINE [Suspect]
     Active Substance: VIGABATRIN
     Indication: SEIZURE
     Route: 065

REACTIONS (14)
  - Feeling of despair [Recovered/Resolved]
  - Postictal paralysis [Recovered/Resolved]
  - Ataxia [Recovered/Resolved]
  - Asterixis [Recovered/Resolved]
  - Thinking abnormal [Recovered/Resolved]
  - Abnormal behaviour [Recovered/Resolved]
  - Fall [Recovered/Resolved]
  - Seizure [Recovered/Resolved]
  - Status epilepticus [Recovered/Resolved]
  - Dysmetria [Recovered/Resolved]
  - Gait disturbance [Recovered/Resolved]
  - Personality disorder [Recovered/Resolved]
  - Apathy [Recovered/Resolved]
  - Aggression [Recovered/Resolved]
